FAERS Safety Report 8073492-7 (Version None)
Quarter: 2012Q1

REPORT INFORMATION
  Report Type: 
  Country: None (occurrence: None)
  Receive Date: 20120126
  Receipt Date: 20120126
  Transmission Date: 20120608
  Serious: Yes (Life-Threatening)
  Sender: FDA-Public Use
  Company Number: None

PATIENT
  Age: 35 Year
  Sex: Male
  Weight: 70.1 kg

DRUGS (2)
  1. MASTERONE [Suspect]
     Dosage: 100MG
     Route: 058
  2. TRENABOL ENANTHATE [Suspect]
     Indication: MUSCLE BUILDING THERAPY
     Dosage: 200.0 MG
     Route: 058

REACTIONS (2)
  - PANCREATITIS HAEMORRHAGIC [None]
  - RENAL FAILURE ACUTE [None]
